FAERS Safety Report 16235699 (Version 1)
Quarter: 2019Q2

REPORT INFORMATION
  Report Type: Spontaneous
  Country: DE (occurrence: DE)
  Receive Date: 20190424
  Receipt Date: 20190424
  Transmission Date: 20190711
  Serious: Yes (Other)
  Sender: FDA-Public Use
  Company Number: DE-TEVA-2019-DE-1039951

PATIENT
  Age: 82 Year
  Sex: Female
  Weight: 82 kg

DRUGS (12)
  1. VIGANTOLETTEN 1000 I.E. [Concomitant]
     Dosage: 1000 IU (INTERNATIONAL UNIT) DAILY;
  2. STANGYL 25 [Concomitant]
     Dosage: 50 MILLIGRAM DAILY;
  3. ACC 200 [Concomitant]
     Active Substance: ACETYLCYSTEINE
     Dosage: 1800 MILLIGRAM DAILY;
  4. ORTHOMOL [Concomitant]
     Dosage: 3 GIFTS
  5. MIRTAZAPIN 30MG [Concomitant]
     Dosage: 30 MILLIGRAM DAILY;
     Route: 048
  6. HCT 25 [Concomitant]
     Active Substance: HYDROCHLOROTHIAZIDE
     Dosage: 25 MILLIGRAM DAILY;
     Route: 048
  7. BELOC-ZOK MITE [Concomitant]
     Active Substance: METOPROLOL SUCCINATE
     Dosage: 47.5 MILLIGRAM DAILY;
     Route: 048
  8. ASPIRIN PROTECT 100 [Concomitant]
     Active Substance: ASPIRIN
     Dosage: 100 MILLIGRAM DAILY;
     Route: 048
     Dates: end: 20190318
  9. DELIX 5 [Concomitant]
     Active Substance: RAMIPRIL
     Dosage: 5 MILLIGRAM DAILY;
     Route: 048
  10. ROSUVASTATIN. [Suspect]
     Active Substance: ROSUVASTATIN
     Indication: CORONARY ARTERY DISEASE
     Dosage: 40 MILLIGRAM DAILY;
     Route: 048
     Dates: start: 20190221, end: 20190315
  11. OXAZEPAM 10MG [Concomitant]
     Active Substance: OXAZEPAM
     Dosage: 10 MILLIGRAM DAILY;
  12. FUROSEMID 40 MG [Concomitant]
     Active Substance: FUROSEMIDE
     Dosage: 40 MILLIGRAM DAILY;
     Route: 048

REACTIONS (5)
  - Neutropenia [Recovered/Resolved]
  - Pancytopenia [Recovered/Resolved]
  - Thrombocytopenia [Recovered/Resolved]
  - Acute kidney injury [Recovered/Resolved]
  - Leukopenia [Recovered/Resolved]

NARRATIVE: CASE EVENT DATE: 20190315
